FAERS Safety Report 8031328-4 (Version None)
Quarter: 2012Q1

REPORT INFORMATION
  Report Type: 
  Country: None (occurrence: None)
  Receive Date: 20120109
  Receipt Date: 20120103
  Transmission Date: 20120608
  Serious: Yes (Hospitalization)
  Sender: FDA-Public Use
  Company Number: DE-GLAXOSMITHKLINE-B0770305A

PATIENT
  Age: 57 Year
  Sex: Male
  Weight: 70.3 kg

DRUGS (3)
  1. CAPECITABINE [Suspect]
     Indication: GASTROOESOPHAGEAL CANCER
     Dosage: 1800MG PER DAY
     Route: 048
     Dates: start: 20111205
  2. LAPATINIB [Suspect]
     Indication: GASTROOESOPHAGEAL CANCER
     Dosage: 1250MG PER DAY
     Route: 048
     Dates: start: 20111205
  3. MORPHINE [Concomitant]
     Indication: PAIN
     Route: 048
     Dates: start: 20111201, end: 20111212

REACTIONS (1)
  - PERIPHERAL MOTOR NEUROPATHY [None]
